FAERS Safety Report 4456815-7 (Version None)
Quarter: 2004Q3

REPORT INFORMATION
  Report Type: 
  Country: None (occurrence: None)
  Receive Date: 20040921
  Receipt Date: 20040907
  Transmission Date: 20050211
  Serious: Yes (Hospitalization)
  Sender: FDA-Public Use
  Company Number: PHHO2004JP11285

PATIENT
  Age: 79 Year
  Sex: Male
  Weight: 55.0213 kg

DRUGS (1)
  1. VISUDYNE [Suspect]
     Indication: MACULAR DEGENERATION
     Dosage: 4.6 MG/M2 DAILY; IV
     Route: 042
     Dates: start: 20040705, end: 20040705

REACTIONS (4)
  - POST PROCEDURAL COMPLICATION [None]
  - RETINAL DETACHMENT [None]
  - RETINAL TEAR [None]
  - VITREOUS HAEMORRHAGE [None]
